FAERS Safety Report 5286986-4 (Version None)
Quarter: 2007Q1

REPORT INFORMATION
  Report Type: 
  Country: None (occurrence: None)
  Receive Date: 20070329
  Receipt Date: 20070314
  Transmission Date: 20070707
  Serious: Yes (Hospitalization)
  Sender: FDA-Public Use
  Company Number: 2007000467

PATIENT
  Age: 48 Year
  Sex: Female

DRUGS (7)
  1. ERLOTINIB / PLACEBO [Suspect]
     Indication: NON-SMALL CELL LUNG CANCER
     Dosage: QD, ORAL
     Route: 048
     Dates: start: 20070228
  2. GEMCITABINE [Suspect]
     Indication: NON-SMALL CELL LUNG CANCER
     Dosage: 2150 MG (1 X PER 7 DAYS), INTRAVENOUS
     Route: 042
     Dates: start: 20070213
  3. CARBOPLATIN [Suspect]
     Indication: NON-SMALL CELL LUNG CANCER
     Dosage: 630 MG (1 X PER 4 WEEK), INTRAVENOUS
     Route: 042
     Dates: start: 20070214
  4. ENDONE (OXYCODONE HYDROCHLORIDE) [Concomitant]
  5. PANTOPRAZOLE SODIUM [Concomitant]
  6. MAXOLON [Concomitant]
  7. VENTOLIN [Concomitant]

REACTIONS (1)
  - ANAEMIA [None]
